FAERS Safety Report 7930021-3 (Version None)
Quarter: 2011Q4

REPORT INFORMATION
  Report Type: 
  Country: None (occurrence: None)
  Receive Date: 20111121
  Receipt Date: 20111114
  Transmission Date: 20120403
  Serious: Yes (Other)
  Sender: FDA-Public Use
  Company Number: US-JNJFOC-20111106616

PATIENT
  Sex: Male
  Weight: 74.84 kg

DRUGS (2)
  1. LISTERINE VANILLA SOFT MINT [Suspect]
     Indication: DENTAL DISORDER PROPHYLAXIS
     Dosage: AS DIRECTED ON THE PACKAGE LABEL
     Route: 048
     Dates: start: 20110714, end: 20111101
  2. LAMICTAL [Concomitant]
     Indication: CONVULSION
     Route: 065

REACTIONS (1)
  - CONVULSION [None]
